FAERS Safety Report 20752097 (Version 1)
Quarter: 2022Q2

REPORT INFORMATION
  Report Type: Spontaneous
  Country: HR (occurrence: HR)
  Receive Date: 20220426
  Receipt Date: 20220426
  Transmission Date: 20220721
  Serious: Yes (Other)
  Sender: FDA-Public Use
  Company Number: None

PATIENT
  Age: 15 Year
  Sex: Female
  Weight: 67 kg

DRUGS (6)
  1. VOLTAREN [Suspect]
     Active Substance: DICLOFENAC SODIUM
     Indication: Product used for unknown indication
     Dosage: 300 MG, QD (6TBL. OD 50MG)
     Route: 048
     Dates: start: 20220323, end: 20220323
  2. ESCITALOPRAM OXALATE [Suspect]
     Active Substance: ESCITALOPRAM OXALATE
     Indication: Product used for unknown indication
     Dosage: 140 MG, QD (14TBL. OD 10MG)
     Route: 048
     Dates: start: 20220323, end: 20220323
  3. ACETAMINOPHEN [Suspect]
     Active Substance: ACETAMINOPHEN
     Indication: Product used for unknown indication
     Dosage: 2000 MG, QD (4TBL. A 500MG)
     Route: 048
     Dates: start: 20220323, end: 20220323
  4. NEBIVOLOL HYDROCHLORIDE [Suspect]
     Active Substance: NEBIVOLOL HYDROCHLORIDE
     Indication: Product used for unknown indication
     Dosage: 15 MG, QD (3TBL. OD 5MG)
     Route: 048
     Dates: start: 20220323, end: 20220323
  5. DESLORATADINE [Suspect]
     Active Substance: DESLORATADINE
     Indication: Product used for unknown indication
     Dosage: 5 DOSAGE FORM, QD (DF = 1 TABLET)
     Route: 048
     Dates: start: 20220323, end: 20220323
  6. ALPRAZOLAM [Suspect]
     Active Substance: ALPRAZOLAM
     Indication: Product used for unknown indication
     Dosage: UNK (3-30 TBL A 0.25 MG)
     Route: 048
     Dates: start: 20220323, end: 20220323

REACTIONS (2)
  - Suicide attempt [Unknown]
  - Intentional overdose [Unknown]

NARRATIVE: CASE EVENT DATE: 20220323
